FAERS Safety Report 5704581-7 (Version None)
Quarter: 2008Q2

REPORT INFORMATION
  Report Type: 
  Country: None (occurrence: None)
  Receive Date: 20080411
  Receipt Date: 20080411
  Transmission Date: 20081010
  Serious: No
  Sender: FDA-Public Use
  Company Number: None

PATIENT
  Age: 27 Year
  Sex: Female
  Weight: 81.6475 kg

DRUGS (5)
  1. SINGULAIR [Suspect]
     Indication: ASTHMA
     Dosage: 10 MG SID PO
     Route: 048
     Dates: start: 20070908, end: 20080403
  2. SINGULAIR [Suspect]
     Indication: MULTIPLE ALLERGIES
     Dosage: 10 MG SID PO
     Route: 048
     Dates: start: 20070908, end: 20080403
  3. ALBUTEROL [Concomitant]
  4. TROVORA [Concomitant]
  5. ADVAIR HFA [Concomitant]

REACTIONS (3)
  - ABNORMAL BEHAVIOUR [None]
  - ANXIETY [None]
  - DEPRESSION [None]
